FAERS Safety Report 13736792 (Version 1)
Quarter: 2017Q3

REPORT INFORMATION
  Report Type: Spontaneous
  Country: US (occurrence: US)
  Receive Date: 20170710
  Receipt Date: 20170710
  Transmission Date: 20171127
  Serious: No
  Sender: FDA-Public Use
  Company Number: US-BAYER-2017-119312

PATIENT
  Sex: Female
  Weight: 82 kg

DRUGS (3)
  1. BYSTOLIC [Concomitant]
     Active Substance: NEBIVOLOL HYDROCHLORIDE
  2. MIRALAX [Suspect]
     Active Substance: POLYETHYLENE GLYCOL 3350
     Indication: COLONOSCOPY
     Dosage: 1 DF, ONCE (DRINKS HALF NOW THEN HALF LATER)
     Route: 048
     Dates: start: 20170620, end: 20170620
  3. LIPITOR [Concomitant]
     Active Substance: ATORVASTATIN CALCIUM

REACTIONS (5)
  - Expired product administered [None]
  - Product use issue [Unknown]
  - Product use in unapproved indication [Unknown]
  - Wrong technique in product usage process [None]
  - Inappropriate prescribing [Unknown]
